FAERS Safety Report 8564104-4 (Version None)
Quarter: 2012Q3

REPORT INFORMATION
  Report Type: 
  Country: None (occurrence: None)
  Receive Date: 20120723
  Receipt Date: 20120706
  Transmission Date: 20120928
  Serious: Yes (Hospitalization, Other)
  Sender: FDA-Public Use
  Company Number: FK201201917

PATIENT
  Age: 40 Year
  Sex: Male
  Weight: 94 kg

DRUGS (7)
  1. ADRIAMYCIN PFS [Suspect]
     Indication: HODGKIN'S DISEASE
     Dosage: 57 MG, INTRAVENOUS (NOT OTHERWISE SPECIFIED)
     Route: 042
     Dates: start: 20120405, end: 20120421
  2. BLEOMYCIN SULFATE [Suspect]
     Indication: HODGKIN'S DISEASE
     Dosage: 23 USP UNITS, INTRAVENOUS (NOT OTHERWISE SPECIFIED)
     Route: 042
     Dates: start: 20120405, end: 20120421
  3. VINBLASTINE SULFATE [Suspect]
     Indication: HODGKIN'S DISEASE
     Dosage: 13.6 MG, INTRAVENOUS (NOT OTHERWISE SPECIFIED)
     Route: 042
     Dates: start: 20120405, end: 20120421
  4. SOLIRIS [Suspect]
     Indication: PAROXYSMAL NOCTURNAL HAEMOGLOBINURIA
     Dosage: 900 MG, INTRAVENOUS (NOT OTHERWISE SPECIFIED)
     Route: 042
     Dates: start: 20120329
  5. VITAMIN B12 [Concomitant]
  6. FOLIC ACID [Concomitant]
  7. DACARBAZINE [Suspect]
     Indication: HODGKIN'S DISEASE
     Dates: start: 20120405, end: 20120421

REACTIONS (2)
  - BLOOD LACTATE DEHYDROGENASE INCREASED [None]
  - STAPHYLOCOCCAL BACTERAEMIA [None]
